FAERS Safety Report 14800767 (Version 1)
Quarter: 2018Q2

REPORT INFORMATION
  Report Type: Spontaneous
  Country: IN (occurrence: IN)
  Receive Date: 20180424
  Receipt Date: 20180424
  Transmission Date: 20180711
  Serious: Yes (Hospitalization, Other)
  Sender: FDA-Public Use
  Company Number: IN-ASTRAZENECA-2018SE50380

PATIENT
  Age: 62 Year
  Sex: Male

DRUGS (13)
  1. ASPIRIN. [Suspect]
     Active Substance: ASPIRIN
     Indication: ANTIPLATELET THERAPY
     Dosage: UNKNOWN DOSE
  2. FRUSEMIDE [Concomitant]
     Active Substance: FUROSEMIDE
  3. TICAGRELOR. [Suspect]
     Active Substance: TICAGRELOR
     Indication: ANTIPLATELET THERAPY
     Dosage: UNKNOWN DOSE
     Route: 048
  4. METOPROLOL. [Concomitant]
     Active Substance: METOPROLOL
  5. RAMIPRIL. [Concomitant]
     Active Substance: RAMIPRIL
  6. TNK-TPA [Suspect]
     Active Substance: TENECTEPLASE
     Indication: THROMBOLYSIS
     Dosage: 40.0MG ONCE/SINGLE ADMINISTRATION
  7. ENOXAPARIN [Suspect]
     Active Substance: ENOXAPARIN
     Indication: THROMBOLYSIS
     Dosage: 30.0MG ONCE/SINGLE ADMINISTRATION
     Route: 058
  8. SPIRONOLACTONE. [Concomitant]
     Active Substance: SPIRONOLACTONE
  9. TICAGRELOR. [Suspect]
     Active Substance: TICAGRELOR
     Indication: ANTIPLATELET THERAPY
     Dosage: LOADING DOSE OF 180 MG
     Route: 048
  10. ASPIRIN. [Suspect]
     Active Substance: ASPIRIN
     Indication: ANTIPLATELET THERAPY
     Dosage: LOADING DOSE OF 325 MG
  11. ATORVASTATIN [Concomitant]
     Active Substance: ATORVASTATIN
  12. HEPARIN [Suspect]
     Active Substance: HEPARIN SODIUM
     Indication: CORONARY ANGIOPLASTY
     Dosage: 5000 IU
  13. ENOXAPARIN [Suspect]
     Active Substance: ENOXAPARIN
     Indication: THROMBOLYSIS
     Dosage: 30.0MG ONCE/SINGLE ADMINISTRATION
     Route: 042

REACTIONS (3)
  - Anaemia [Unknown]
  - Gastric ulcer haemorrhage [Recovered/Resolved]
  - Epistaxis [Recovered/Resolved]
